FAERS Safety Report 15153189 (Version 1)
Quarter: 2018Q3

REPORT INFORMATION
  Report Type: Spontaneous
  Country: ES (occurrence: ES)
  Receive Date: 20180717
  Receipt Date: 20180717
  Transmission Date: 20181010
  Serious: Yes (Other)
  Sender: FDA-Public Use
  Company Number: ES-TEVA-2018-ES-926727

PATIENT
  Age: 74 Year
  Sex: Female

DRUGS (1)
  1. TRAMADOL (2389A) [Suspect]
     Active Substance: TRAMADOL
     Route: 065
     Dates: start: 20151216, end: 20180602

REACTIONS (2)
  - Nausea [Recovered/Resolved]
  - Abdominal discomfort [Recovered/Resolved]

NARRATIVE: CASE EVENT DATE: 2018
